FAERS Safety Report 5367706-1 (Version None)
Quarter: 2007Q2

REPORT INFORMATION
  Report Type: 
  Country: None (occurrence: None)
  Receive Date: 20070622
  Receipt Date: 20070402
  Transmission Date: 20071010
  Serious: No
  Sender: FDA-Public Use
  Company Number: US-ASTRAZENECA-2007UW06541

PATIENT
  Age: 11 Month
  Sex: Female
  Weight: 6.4 kg

DRUGS (5)
  1. PULMICORT RESPULES [Suspect]
     Route: 055
     Dates: start: 20070216
  2. POLYCOSE [Concomitant]
  3. POLY VI [Concomitant]
  4. TYLENOL [Concomitant]
  5. ALBUTEROL [Concomitant]

REACTIONS (3)
  - INSOMNIA [None]
  - SOMNOLENCE [None]
  - WEIGHT GAIN POOR [None]
